FAERS Safety Report 6401478-4 (Version None)
Quarter: 2009Q4

REPORT INFORMATION
  Report Type: 
  Country: None (occurrence: None)
  Receive Date: 20091015
  Receipt Date: 20091007
  Transmission Date: 20100525
  Serious: Yes (Hospitalization, Other)
  Sender: FDA-Public Use
  Company Number: UA-BRISTOL-MYERS SQUIBB COMPANY-14483275

PATIENT
  Age: 46 Year
  Sex: Male

DRUGS (3)
  1. METFORMIN HCL [Suspect]
     Indication: TYPE 2 DIABETES MELLITUS
     Dosage: INTERRUPTED ON 22JAN09
     Route: 048
     Dates: start: 20081201, end: 20090122
  2. PLACEBO [Suspect]
     Indication: TYPE 2 DIABETES MELLITUS
     Dosage: INTERRUPTED ON 22JAN09
     Route: 048
     Dates: start: 20081201, end: 20090122
  3. NOLIPREL [Concomitant]
     Dates: start: 20080920

REACTIONS (2)
  - CYSTITIS [None]
  - PYELONEPHRITIS [None]
